FAERS Safety Report 8431216-5 (Version None)
Quarter: 2012Q2

REPORT INFORMATION
  Report Type: 
  Country: None (occurrence: None)
  Receive Date: 20120612
  Receipt Date: 20120604
  Transmission Date: 20120825
  Serious: Yes (Hospitalization)
  Sender: FDA-Public Use
  Company Number: DE-TEVA-342157GER

PATIENT
  Sex: Female
  Weight: 61 kg

DRUGS (4)
  1. LAPATINIB [Suspect]
     Indication: BREAST CANCER
     Dosage: 1000 MILLIGRAM;
     Route: 048
     Dates: start: 20120312
  2. NPLD [Suspect]
     Indication: BREAST CANCER
     Route: 042
     Dates: start: 20120312
  3. PACLITAXEL [Suspect]
     Indication: BREAST CANCER
     Route: 042
     Dates: start: 20120312
  4. TRASTUZUMAB [Suspect]
     Indication: BREAST CANCER
     Route: 042
     Dates: start: 20120312

REACTIONS (1)
  - HYPOCALCAEMIA [None]
